FAERS Safety Report 12073754 (Version 1)
Quarter: 2016Q1

REPORT INFORMATION
  Report Type: Spontaneous
  Country: IT (occurrence: IT)
  Receive Date: 20160212
  Receipt Date: 20160212
  Transmission Date: 20160526
  Serious: Yes (Other)
  Sender: FDA-Public Use
  Company Number: IT-TEIKOKU PHARMA USA-TPU2016-00085

PATIENT
  Sex: Male

DRUGS (2)
  1. VERSATIS [Suspect]
     Active Substance: LIDOCAINE
     Indication: MYALGIA
     Route: 061
     Dates: start: 201601, end: 201601
  2. CELEBREX [Suspect]
     Active Substance: CELECOXIB
     Route: 048
     Dates: start: 201601, end: 201601

REACTIONS (1)
  - Atrial fibrillation [Recovered/Resolved]

NARRATIVE: CASE EVENT DATE: 201601
